FAERS Safety Report 24389132 (Version 2)
Quarter: 2024Q4

REPORT INFORMATION
  Report Type: Spontaneous
  Country: KR (occurrence: KR)
  Receive Date: 20241002
  Receipt Date: 20241203
  Transmission Date: 20250115
  Serious: Yes (Hospitalization)
  Sender: BRISTOL-MYERS SQUIBB COMPANY
  Company Number: KR-BRISTOL-MYERS SQUIBB COMPANY-2024-153621

PATIENT
  Age: 60 Year
  Sex: Male
  Weight: 63.3 kg

DRUGS (16)
  1. ELIQUIS [Suspect]
     Active Substance: APIXABAN
     Indication: Pulmonary embolism
     Dates: start: 20201218
  2. PANTOPRAZOLE SODIUM [Concomitant]
     Active Substance: PANTOPRAZOLE SODIUM
     Indication: Gastritis prophylaxis
     Dates: start: 20201218, end: 20210105
  3. ACETAMINOPHEN [Concomitant]
     Active Substance: ACETAMINOPHEN
     Indication: Myalgia
     Dates: start: 20201218
  4. ACETAMINOPHEN [Concomitant]
     Active Substance: ACETAMINOPHEN
     Indication: Ear infection
     Dates: start: 20201218
  5. ACETAMINOPHEN [Concomitant]
     Active Substance: ACETAMINOPHEN
     Indication: Ear pain
  6. AMBROXOL ACEFYLLINATE [Concomitant]
     Active Substance: AMBROXOL ACEFYLLINATE
     Indication: Prophylaxis
     Dates: start: 20210107
  7. CEFDINIR [Concomitant]
     Active Substance: CEFDINIR
     Indication: Ear pain
     Dates: start: 20201219, end: 20210225
  8. METOCLOPRAMIDE [Concomitant]
     Active Substance: METOCLOPRAMIDE
     Indication: Gastritis prophylaxis
     Dates: start: 20201221, end: 20210228
  9. OFLOXACIN [Concomitant]
     Active Substance: OFLOXACIN
     Indication: Ear infection
     Dates: start: 20201223
  10. OFLOXACIN [Concomitant]
     Active Substance: OFLOXACIN
     Indication: Ear pain
  11. TRAMADOL HYDROCHLORIDE [Concomitant]
     Active Substance: TRAMADOL HYDROCHLORIDE
     Indication: Myalgia
     Dates: start: 20201218
  12. MONTMORILLONITE [Concomitant]
     Active Substance: MONTMORILLONITE
     Indication: Prophylaxis against diarrhoea
     Dates: start: 20201221, end: 20201230
  13. RABEPRAZOLE SODIUM [Concomitant]
     Active Substance: RABEPRAZOLE SODIUM
     Indication: Gastritis prophylaxis
     Dates: start: 20210222
  14. LAFUTIDINE [Concomitant]
     Active Substance: LAFUTIDINE
     Indication: Gastritis prophylaxis
     Dates: start: 20210219
  15. LORAZEPAM [Concomitant]
     Active Substance: LORAZEPAM
     Indication: Prophylaxis
     Dates: start: 20210201, end: 20210228
  16. LACTULOSE [Concomitant]
     Active Substance: LACTULOSE
     Indication: Constipation prophylaxis
     Dates: start: 20201218, end: 20201221

REACTIONS (3)
  - Skin lesion [Recovered/Resolved]
  - Drug eruption [Not Recovered/Not Resolved]
  - Off label use [Unknown]

NARRATIVE: CASE EVENT DATE: 20210222
